FAERS Safety Report 12093734 (Version 1)
Quarter: 2016Q1

REPORT INFORMATION
  Report Type: Spontaneous
  Country: FR (occurrence: FR)
  Receive Date: 20160219
  Receipt Date: 20160219
  Transmission Date: 20160526
  Serious: Yes (Hospitalization)
  Sender: FDA-Public Use
  Company Number: FR-PFIZER INC-2016089646

PATIENT
  Age: 62 Year
  Sex: Female

DRUGS (3)
  1. SECTRAL [Suspect]
     Active Substance: ACEBUTOLOL HYDROCHLORIDE
     Dosage: 10 DF OF 200 MG, SINGLE
     Route: 048
     Dates: start: 20160110, end: 20160110
  2. DOLIPRANE [Suspect]
     Active Substance: ACETAMINOPHEN
     Dosage: 10 DF OF 1 G, SINGLE
     Route: 048
     Dates: start: 20160110, end: 20160110
  3. TAHOR [Suspect]
     Active Substance: ATORVASTATIN CALCIUM
     Dosage: 14 DF OF 40 MG, SINGLE
     Route: 048
     Dates: start: 20160110, end: 20160110

REACTIONS (3)
  - Suicide attempt [Unknown]
  - Overdose [Unknown]
  - Bradycardia [Unknown]

NARRATIVE: CASE EVENT DATE: 20160110
